APPROVED DRUG PRODUCT: TERIFLUNOMIDE
Active Ingredient: TERIFLUNOMIDE
Strength: 7MG
Dosage Form/Route: TABLET;ORAL
Application: A209598 | Product #001 | TE Code: AB
Applicant: HETERO LABS LTD UNIT V
Approved: Mar 13, 2023 | RLD: No | RS: No | Type: RX